FAERS Safety Report 22614156 (Version 1)
Quarter: 2023Q2

REPORT INFORMATION
  Report Type: Report from Study
  Country: GB (occurrence: GB)
  Receive Date: 20230619
  Receipt Date: 20230619
  Transmission Date: 20230722
  Serious: Yes (Other)
  Sender: FDA-Public Use
  Company Number: GB-CELLTRION INC.-2023GB012310

PATIENT

DRUGS (7)
  1. BEVACIZUMAB [Suspect]
     Active Substance: BEVACIZUMAB
     Indication: Hepatocellular carcinoma
     Dosage: 1300 MG
     Route: 065
     Dates: start: 20210902
  2. ATEZOLIZUMAB [Suspect]
     Active Substance: ATEZOLIZUMAB
     Indication: Hepatocellular carcinoma
     Dosage: 1200 MG
     Route: 041
     Dates: start: 20210902
  3. ACETAMINOPHEN [Concomitant]
     Active Substance: ACETAMINOPHEN
     Dosage: 1 G (ADDITIONAL INFO: ROUTE:)
     Dates: start: 20210910
  4. RAMIPRIL [Concomitant]
     Active Substance: RAMIPRIL
     Dosage: EVERY 1 DAY (ADDITIONAL INFO: ROUTE:)
     Dates: start: 20211126
  5. RAMIPRIL [Concomitant]
     Active Substance: RAMIPRIL
     Dosage: EVERY 1 DAY (ADDITIONAL INFO: ROUTE:)
     Dates: start: 2009, end: 20211125
  6. THYROXINE [Concomitant]
     Active Substance: LEVOTHYROXINE
     Dosage: 25 MICROGRAM (ADDITIONAL INFO: ROUTE:)
     Dates: start: 2019
  7. VITAMIN D2 [Concomitant]
     Active Substance: ERGOCALCIFEROL
     Dosage: EVERY 1 DAY
     Dates: start: 2019

REACTIONS (3)
  - Hypertension [Recovered/Resolved]
  - Hypertension [Not Recovered/Not Resolved]
  - Intentional product use issue [Unknown]

NARRATIVE: CASE EVENT DATE: 20211125
